FAERS Safety Report 19362111 (Version 9)
Quarter: 2022Q2

REPORT INFORMATION
  Report Type: Spontaneous
  Country: IN (occurrence: IN)
  Receive Date: 20210601
  Receipt Date: 20220404
  Transmission Date: 20220721
  Serious: Yes (Hospitalization, Other)
  Sender: FDA-Public Use
  Company Number: IN-PFIZER INC-2019512774

PATIENT
  Age: 66 Year
  Sex: Female

DRUGS (10)
  1. PALBOCICLIB [Suspect]
     Active Substance: PALBOCICLIB
     Indication: Breast cancer metastatic
     Dosage: 125 MG, 1X/DAY
     Route: 048
     Dates: start: 20190429
  2. PALBOCICLIB [Suspect]
     Active Substance: PALBOCICLIB
     Dosage: 100 MG, 1X/DAY
     Route: 048
  3. LETROZ [Concomitant]
     Dosage: UNK
     Dates: start: 20190429
  4. ZOLEDRONIC ACID [Concomitant]
     Active Substance: ZOLEDRONIC ACID
     Dosage: UNK, MONTHLY
     Dates: start: 20190429
  5. GLIMISAVE [Concomitant]
     Dosage: UNK
  6. ISTAMET XR CP [Concomitant]
     Dosage: UNK
  7. ASPIRIN\ATORVASTATIN [Concomitant]
     Active Substance: ASPIRIN\ATORVASTATIN
     Dosage: UNK
  8. TENEFIT M [Concomitant]
     Dosage: UNK
  9. METLAR [Concomitant]
     Dosage: UNK, 1X/DAY
  10. METLAR [Concomitant]
     Dosage: 50 OD

REACTIONS (25)
  - Pyrexia [Recovering/Resolving]
  - Neutropenia [Unknown]
  - Alpha haemolytic streptococcal infection [Unknown]
  - Diabetes mellitus inadequate control [Unknown]
  - Cataract [Unknown]
  - Diarrhoea [Unknown]
  - Escherichia test positive [Unknown]
  - Glycosylated haemoglobin increased [Unknown]
  - Haemoglobin decreased [Not Recovered/Not Resolved]
  - Blood potassium decreased [Unknown]
  - Lymphocyte count increased [Unknown]
  - Pollakiuria [Unknown]
  - Lacrimation increased [Unknown]
  - Vision blurred [Unknown]
  - Neoplasm progression [Unknown]
  - White blood cells urine positive [Unknown]
  - Urinary tract infection bacterial [Not Recovered/Not Resolved]
  - Laboratory test abnormal [Unknown]
  - White blood cell count abnormal [Unknown]
  - Neutrophil count abnormal [Unknown]
  - Prothrombin time prolonged [Unknown]
  - Blood urea increased [Unknown]
  - Aspartate aminotransferase increased [Unknown]
  - Blood glucose increased [Unknown]
  - White blood cell count decreased [Unknown]

NARRATIVE: CASE EVENT DATE: 20190512
